FAERS Safety Report 9366219 (Version 2)
Quarter: 2013Q3

REPORT INFORMATION
  Report Type: Spontaneous
  Country: GB (occurrence: GB)
  Receive Date: 20130625
  Receipt Date: 20130808
  Transmission Date: 20140515
  Serious: Yes (Other)
  Sender: FDA-Public Use
  Company Number: GB-JNJFOC-20130612229

PATIENT
  Sex: Female

DRUGS (4)
  1. TOPAMAX [Suspect]
     Indication: MIGRAINE
     Route: 048
  2. TOPAMAX [Suspect]
     Indication: MIGRAINE
     Route: 048
  3. TOPAMAX [Suspect]
     Indication: MIGRAINE
     Route: 048
  4. TOPAMAX [Suspect]
     Indication: MIGRAINE
     Route: 048

REACTIONS (26)
  - Suicidal ideation [Recovered/Resolved]
  - Headache [Recovered/Resolved]
  - Mood swings [Recovered/Resolved]
  - Somnolence [Recovered/Resolved]
  - Vision blurred [Recovered/Resolved]
  - Dyspnoea [Recovered/Resolved]
  - Muscular weakness [Recovered/Resolved]
  - Tinnitus [Recovered/Resolved]
  - Heart rate increased [Recovered/Resolved]
  - Fatigue [Recovered/Resolved]
  - Insomnia [Recovered/Resolved]
  - Thirst [Recovered/Resolved]
  - Micturition urgency [Recovered/Resolved]
  - Personality change [Recovered/Resolved]
  - Malaise [Recovered/Resolved]
  - Disturbance in attention [Recovered/Resolved]
  - Dry mouth [Recovered/Resolved]
  - Crying [Recovered/Resolved]
  - Accidental overdose [Recovered/Resolved]
  - Feeling abnormal [Recovered/Resolved]
  - Agitation [Recovered/Resolved]
  - Confusional state [Recovered/Resolved]
  - Dysgeusia [Recovered/Resolved]
  - Dizziness [Recovered/Resolved]
  - Paraesthesia [Recovered/Resolved]
  - Pyrexia [Recovered/Resolved]
